FAERS Safety Report 10217345 (Version 1)
Quarter: 2014Q1

REPORT INFORMATION
  Report Type: Spontaneous
  Country: US (occurrence: None)
  Receive Date: 20140306
  Receipt Date: 20140306
  Transmission Date: 20141002
  Serious: Yes (Hospitalization)
  Sender: FDA-Public Use
  Company Number: 163-21880-13044697

PATIENT
  Age: 60 Year
  Sex: Male
  Weight: 93.9 kg

DRUGS (1)
  1. REVLIMID [Suspect]
     Indication: CHRONIC LYMPHOCYTIC LEUKAEMIA
     Dosage: 5 MG, 21 IN 28 D, PO
     Route: 048
     Dates: start: 201302, end: 201302

REACTIONS (1)
  - Pain in extremity [None]
